FAERS Safety Report 8860112 (Version 4)
Quarter: 2013Q1

REPORT INFORMATION
  Report Type: Spontaneous
  Country: US (occurrence: US)
  Receive Date: 20121025
  Receipt Date: 20130117
  Transmission Date: 20140127
  Serious: Yes (Hospitalization)
  Sender: FDA-Public Use
  Company Number: US-BIOGENIDEC-2012BI046060

PATIENT
  Age: 46 Year
  Sex: Male

DRUGS (1)
  1. TYSABRI [Suspect]
     Indication: MULTIPLE SCLEROSIS
     Route: 042
     Dates: start: 20120724

REACTIONS (6)
  - Activities of daily living impaired [Unknown]
  - Fall [Recovered/Resolved]
  - Rash [Unknown]
  - Cystitis [Recovered/Resolved]
  - Neurogenic bladder [Recovered/Resolved]
  - Urinary tract infection [Recovered/Resolved]
